FAERS Safety Report 4459223-8 (Version None)
Quarter: 2004Q3

REPORT INFORMATION
  Report Type: 
  Country: None (occurrence: None)
  Receive Date: 20040927
  Receipt Date: 20040921
  Transmission Date: 20050211
  Serious: Yes (Other)
  Sender: FDA-Public Use
  Company Number: US-JNJFOC-20040802826

PATIENT
  Sex: Male
  Weight: 84.37 kg

DRUGS (7)
  1. RISPERDAL [Suspect]
     Route: 049
  2. RISPERDAL [Suspect]
     Dosage: (TAKEN AT BEDTIME)
     Route: 049
  3. ULTRAM [Suspect]
     Indication: PAIN
     Route: 049
     Dates: start: 20031201, end: 20040701
  4. DILANTIN [Concomitant]
  5. IBUPROFEN [Concomitant]
  6. DAPSONE [Concomitant]
  7. TRAZODONE HCL [Concomitant]
     Dosage: 50-100 MG NIGHTLY

REACTIONS (5)
  - AGGRESSION [None]
  - DRUG LEVEL BELOW THERAPEUTIC [None]
  - HOMICIDAL IDEATION [None]
  - PSYCHOTIC DISORDER [None]
  - SUICIDAL IDEATION [None]
